FAERS Safety Report 7600463-4 (Version None)
Quarter: 2011Q3

REPORT INFORMATION
  Report Type: 
  Country: None (occurrence: None)
  Receive Date: 20110706
  Receipt Date: 20110706
  Transmission Date: 20111222
  Serious: No
  Sender: FDA-Public Use
  Company Number: None

PATIENT
  Sex: Male
  Weight: 91.173 kg

DRUGS (2)
  1. ZANTAC [Suspect]
  2. OMEPRAZOLE [Suspect]

REACTIONS (1)
  - ECONOMIC PROBLEM [None]
